FAERS Safety Report 17994970 (Version 1)
Quarter: 2020Q3

REPORT INFORMATION
  Report Type: Spontaneous
  Country: ES (occurrence: ES)
  Receive Date: 20200708
  Receipt Date: 20200708
  Transmission Date: 20201103
  Serious: Yes (Hospitalization)
  Sender: FDA-Public Use
  Company Number: ES-PFIZER INC-2020260599

PATIENT
  Age: 6 Year
  Sex: Female
  Weight: 19.3 kg

DRUGS (5)
  1. HYDROCORTISONE. [Concomitant]
     Active Substance: HYDROCORTISONE
     Indication: ACUTE LYMPHOCYTIC LEUKAEMIA
     Dosage: 20 MG, DAILY
     Route: 037
     Dates: start: 20200507, end: 20200507
  2. CYTARABINE. [Concomitant]
     Active Substance: CYTARABINE
     Indication: ACUTE LYMPHOCYTIC LEUKAEMIA
     Dosage: 75 MG/M2, DAILY
     Route: 042
     Dates: start: 20200507, end: 20200510
  3. MERCAPTOPURINE. [Concomitant]
     Active Substance: MERCAPTOPURINE
     Indication: ACUTE LYMPHOCYTIC LEUKAEMIA
     Dosage: 60 MG/M2, DAILY
     Route: 048
     Dates: start: 20200414, end: 20200510
  4. CYTARABINE. [Concomitant]
     Active Substance: CYTARABINE
     Indication: ACUTE LYMPHOCYTIC LEUKAEMIA
     Dosage: 30 MG, DAILY
     Route: 037
     Dates: start: 20200507, end: 20200507
  5. METHOTREXATE SODIUM. [Suspect]
     Active Substance: METHOTREXATE SODIUM
     Indication: ACUTE LYMPHOCYTIC LEUKAEMIA
     Dosage: 12 MG, DAILY
     Route: 037
     Dates: start: 20200507, end: 20200507

REACTIONS (1)
  - Epilepsy with myoclonic-atonic seizures [Recovered/Resolved]

NARRATIVE: CASE EVENT DATE: 20200514
